FAERS Safety Report 5908938-0 (Version None)
Quarter: 2008Q4

REPORT INFORMATION
  Report Type: 
  Country: None (occurrence: None)
  Receive Date: 20081006
  Receipt Date: 20080930
  Transmission Date: 20090506
  Serious: Yes (Disabling)
  Sender: FDA-Public Use
  Company Number: DK-ASTRAZENECA-2008SE04477

PATIENT
  Age: 20416 Day
  Sex: Male
  Weight: 76 kg

DRUGS (3)
  1. MERONEM [Suspect]
     Indication: SEPSIS
     Route: 042
     Dates: start: 20080118, end: 20080218
  2. CIPROFLOXACIN [Concomitant]
     Indication: SEPSIS
     Route: 042
     Dates: start: 20080118, end: 20080218
  3. AMOXICILLIN AND CLAVULANATE POTASSIUM [Concomitant]
     Indication: SEPSIS
     Route: 042
     Dates: start: 20080118, end: 20080218

REACTIONS (3)
  - DYSAESTHESIA [None]
  - PARAESTHESIA [None]
  - POLYNEUROPATHY [None]
